FAERS Safety Report 16873943 (Version 1)
Quarter: 2019Q4

REPORT INFORMATION
  Report Type: Spontaneous
  Country: FR (occurrence: FR)
  Receive Date: 20191001
  Receipt Date: 20191001
  Transmission Date: 20200122
  Serious: Yes (Death, Hospitalization)
  Sender: FDA-Public Use
  Company Number: FR-MYLANLABS-2019M1091529

PATIENT
  Age: 60 Year
  Sex: Female

DRUGS (6)
  1. CAPECITABINE. [Suspect]
     Active Substance: CAPECITABINE
     Indication: INVASIVE DUCTAL BREAST CARCINOMA
     Dosage: 1000 MG THE MORNING AND 1250 MG THE EVENING
     Route: 048
     Dates: start: 2017
  2. EPIRUBICIN [Suspect]
     Active Substance: EPIRUBICIN
     Indication: INVASIVE DUCTAL BREAST CARCINOMA
     Dosage: SHE RECEIVED THREE COURSES
     Route: 065
     Dates: start: 2014
  3. FLUOROURACIL. [Suspect]
     Active Substance: FLUOROURACIL
     Indication: INVASIVE DUCTAL BREAST CARCINOMA
     Dosage: SHE RECEIVED THREE COURSES
     Route: 042
     Dates: start: 2014
  4. VINORELBINE [Suspect]
     Active Substance: VINORELBINE TARTRATE
     Indication: INVASIVE DUCTAL BREAST CARCINOMA
     Route: 048
     Dates: start: 2017
  5. CYCLOPHOSPHAMIDE. [Suspect]
     Active Substance: CYCLOPHOSPHAMIDE
     Indication: INVASIVE DUCTAL BREAST CARCINOMA
     Dosage: SHE RECEIVED THREE COURSES
     Route: 065
     Dates: start: 2014
  6. DOCETAXEL. [Suspect]
     Active Substance: DOCETAXEL
     Indication: INVASIVE DUCTAL BREAST CARCINOMA
     Dosage: SHE RECEIVED THREE COURSES
     Route: 065
     Dates: start: 2014

REACTIONS (13)
  - Mucosal inflammation [Fatal]
  - Nausea [Fatal]
  - Neutropenia [Fatal]
  - Palmar-plantar erythrodysaesthesia syndrome [Fatal]
  - Sepsis [Fatal]
  - Vomiting [Fatal]
  - Erythema [Fatal]
  - Thrombocytopenia [Fatal]
  - Hepatocellular injury [Fatal]
  - Decreased appetite [Fatal]
  - Coagulation factor decreased [Fatal]
  - Renal impairment [Fatal]
  - Dermatitis exfoliative generalised [Fatal]
